FAERS Safety Report 21455791 (Version 2)
Quarter: 2024Q2

REPORT INFORMATION
  Report Type: Spontaneous
  Country: US (occurrence: US)
  Receive Date: 20221014
  Receipt Date: 20240425
  Transmission Date: 20240716
  Serious: No
  Sender: FDA-Public Use
  Company Number: US-SUN PHARMACEUTICAL INDUSTRIES LTD-2022R1-343865

PATIENT
  Sex: Female

DRUGS (1)
  1. ILUMYA [Suspect]
     Active Substance: TILDRAKIZUMAB-ASMN
     Indication: Psoriasis
     Dosage: 125 MILLIGRAM, EVERY 12 WEEKS
     Route: 065

REACTIONS (3)
  - Therapeutic response decreased [Unknown]
  - Psoriasis [Unknown]
  - Drug ineffective [Unknown]
